FAERS Safety Report 25154441 (Version 3)
Quarter: 2025Q2

REPORT INFORMATION
  Report Type: Spontaneous
  Country: DE (occurrence: DE)
  Receive Date: 20250403
  Receipt Date: 20250617
  Transmission Date: 20250716
  Serious: Yes (Hospitalization, Other)
  Sender: REGENERON
  Company Number: DE-BAYER-2025A042170

PATIENT
  Age: 82 Year
  Sex: Male

DRUGS (1)
  1. EYLEA [Suspect]
     Active Substance: AFLIBERCEPT
     Indication: Neovascular age-related macular degeneration
     Route: 031
     Dates: start: 2017

REACTIONS (8)
  - Injury corneal [Unknown]
  - Visual impairment [Unknown]
  - Transplant failure [Unknown]
  - Transplant failure [Unknown]
  - Transplant failure [Unknown]
  - Corneal striae [Unknown]
  - Loss of visual contrast sensitivity [Unknown]
  - Visual acuity reduced [Unknown]

NARRATIVE: CASE EVENT DATE: 20170101
